FAERS Safety Report 6179729-3 (Version None)
Quarter: 2009Q2

REPORT INFORMATION
  Report Type: 
  Country: None (occurrence: None)
  Receive Date: 20090501
  Receipt Date: 20090501
  Transmission Date: 20091009
  Serious: Yes (Life-Threatening)
  Sender: FDA-Public Use
  Company Number: None

PATIENT
  Age: 30 Year
  Sex: Male
  Weight: 162 kg

DRUGS (13)
  1. CASPOFUNGIN [Suspect]
     Indication: EVIDENCE BASED TREATMENT
     Dosage: 50 MG IV QD
     Route: 042
     Dates: start: 20090114, end: 20090119
  2. CASPOFUNGIN [Suspect]
     Indication: FUNGAL INFECTION
     Dosage: 50 MG IV QD
     Route: 042
     Dates: start: 20090114, end: 20090119
  3. LINEZOLID [Concomitant]
  4. METHYLPREDNISOLONE 4MG TAB [Concomitant]
  5. EPOETIN [Concomitant]
  6. FENTANYL [Concomitant]
  7. PREVACID [Concomitant]
  8. SENNA [Concomitant]
  9. COLACE [Concomitant]
  10. HEPARIN [Concomitant]
  11. LORAZEPAM [Concomitant]
  12. FOLIC ACID [Concomitant]
  13. THIAMINE HCL [Concomitant]

REACTIONS (2)
  - ALANINE AMINOTRANSFERASE INCREASED [None]
  - ASPARTATE AMINOTRANSFERASE INCREASED [None]
